FAERS Safety Report 18929097 (Version 2)
Quarter: 2021Q1

REPORT INFORMATION
  Report Type: Report from Study
  Country: US (occurrence: US)
  Receive Date: 20210223
  Receipt Date: 20210301
  Transmission Date: 20210420
  Serious: No
  Sender: FDA-Public Use
  Company Number: US-SA-2021SA059146

PATIENT
  Age: 59 Year
  Sex: Female

DRUGS (7)
  1. PROVENTIL [Concomitant]
     Active Substance: ALBUTEROL
     Dosage: UNK
  2. PREDNISONE. [Concomitant]
     Active Substance: PREDNISONE
     Dosage: UNK
  3. DUPILUMAB [Suspect]
     Active Substance: DUPILUMAB
     Indication: ASTHMA
     Dosage: UNK
  4. VENTOLIN [Concomitant]
     Active Substance: ALBUTEROL SULFATE
     Dosage: UNK
  5. SYMBICORT [Concomitant]
     Active Substance: BUDESONIDE\FORMOTEROL FUMARATE DIHYDRATE
     Dosage: UNK
  6. ACCUNEB [Concomitant]
     Active Substance: ALBUTEROL SULFATE
     Dosage: UNK
  7. FLONASE ALLERGY RELIEF [Concomitant]
     Active Substance: FLUTICASONE PROPIONATE
     Indication: NASAL POLYPS

REACTIONS (9)
  - Rhinorrhoea [Unknown]
  - Wheezing [Unknown]
  - Insomnia [Unknown]
  - Dyspnoea [Unknown]
  - Cough [Unknown]
  - Nasal congestion [Unknown]
  - Upper-airway cough syndrome [Unknown]
  - Chest discomfort [Unknown]
  - Anosmia [Unknown]
